FAERS Safety Report 17285480 (Version 2)
Quarter: 2020Q1

REPORT INFORMATION
  Report Type: Report from Study
  Country: JP (occurrence: JP)
  Receive Date: 20200117
  Receipt Date: 20200124
  Transmission Date: 20200409
  Serious: Yes (Death)
  Sender: FDA-Public Use
  Company Number: JP-GALDERMA-JP2020002460

PATIENT
  Age: 51 Year
  Sex: Female
  Weight: 36 kg

DRUGS (3)
  1. TS-1 [Concomitant]
     Active Substance: GIMERACIL\OTERACIL\TEGAFUR
     Indication: BREAST CANCER
     Dosage: 100 MG
     Route: 048
     Dates: start: 20180913
  2. ROZEX (METRONIDAZOLE) [Suspect]
     Active Substance: METRONIDAZOLE
     Indication: WOUND COMPLICATION
     Dosage: 0.75%
     Route: 061
     Dates: start: 20180705, end: 20181017
  3. FEMARA [Concomitant]
     Active Substance: LETROZOLE
     Indication: BREAST CANCER
     Dosage: 2.5 MG
     Route: 048
     Dates: start: 20180720, end: 20180922

REACTIONS (1)
  - Death [Fatal]

NARRATIVE: CASE EVENT DATE: 20191004
